FAERS Safety Report 22350369 (Version 3)
Quarter: 2023Q2

REPORT INFORMATION
  Report Type: Spontaneous
  Country: US (occurrence: US)
  Receive Date: 20230522
  Receipt Date: 20230620
  Transmission Date: 20230721
  Serious: Yes (Other)
  Sender: FDA-Public Use
  Company Number: US-ORGANON-O2305USA001801

PATIENT
  Age: 18 Year
  Sex: Female
  Weight: 57.38 kg

DRUGS (10)
  1. NEXPLANON [Suspect]
     Active Substance: ETONOGESTREL
     Indication: Contraception
     Dosage: 1 IMPLANT IN RIGHT ARM
     Route: 059
     Dates: start: 202205, end: 20230515
  2. WELLBUTRIN [Concomitant]
     Active Substance: BUPROPION HYDROCHLORIDE
     Dosage: 450 MG DAILY
  3. ZOLOFT [Concomitant]
     Active Substance: SERTRALINE HYDROCHLORIDE
     Dosage: 150 MILLIGRAM, DAILY, 1-2 TABLETS BY MOUTH
     Route: 048
  4. OMEPRAZOLE [Concomitant]
     Active Substance: OMEPRAZOLE
     Dosage: 40 MILLIGRAM DAILY
  5. ZANTAC [Concomitant]
     Active Substance: RANITIDINE HYDROCHLORIDE
     Dosage: 20 MILLIGRAM DAILY
  6. FERROUS SULFATE [Concomitant]
     Active Substance: FERROUS SULFATE
     Dosage: 45 MCG DAILY
     Route: 048
  7. NAPROXEN [Concomitant]
     Active Substance: NAPROXEN
     Indication: Pain
     Dosage: AS NEEDED FOR PAIN
  8. ALBUTEROL [Concomitant]
     Active Substance: ALBUTEROL
     Dosage: AS NEEDED
  9. BUPROPION HYDROCHLORIDE [Concomitant]
     Active Substance: BUPROPION HYDROCHLORIDE
     Dosage: 130 MILLIGRAM, Q24H
     Route: 048
  10. NORETHINDRONE [Concomitant]
     Active Substance: NORETHINDRONE
     Dosage: 35 MILLIGRAM
     Route: 048

REACTIONS (10)
  - Device dislocation [Recovered/Resolved]
  - Peripheral swelling [Recovered/Resolved]
  - Sensory loss [Unknown]
  - Peripheral coldness [Recovered/Resolved]
  - Implant site injury [Unknown]
  - Paraesthesia [Recovered/Resolved]
  - Device kink [Recovered/Resolved]
  - Complication of device removal [Recovered/Resolved]
  - Implant site pain [Recovering/Resolving]
  - Pain [Recovered/Resolved]

NARRATIVE: CASE EVENT DATE: 20230501
